FAERS Safety Report 7949889 (Version 2)
Quarter: 2014Q3

REPORT INFORMATION
  Report Type: Report from Study
  Country: ES (occurrence: ES)
  Receive Date: 20110518
  Receipt Date: 20140918
  Transmission Date: 20150326
  Serious: Yes (Hospitalization, Other)
  Sender: FDA-Public Use
  Company Number: ES-ELI_LILLY_AND_COMPANY-ES201105003104

PATIENT
  Age: 82 Year
  Sex: Female
  Weight: 65 kg

DRUGS (3)
  1. TERIPARATIDE [Suspect]
     Active Substance: TERIPARATIDE
     Indication: OSTEOPOROSIS
     Dosage: 20 UG, QD
     Route: 058
     Dates: start: 20110330, end: 20110506
  2. CALCIUM SANDOZ [Concomitant]
     Active Substance: CALCIUM
     Indication: OSTEOPOROSIS
     Dosage: UNK, QD
     Route: 048
  3. ENALAPRIL [Concomitant]
     Active Substance: ENALAPRIL
     Indication: HYPERTENSION
     Dosage: UNK
     Route: 048

REACTIONS (2)
  - Wound infection bacterial [Not Recovered/Not Resolved]
  - Femur fracture [Unknown]

NARRATIVE: CASE EVENT DATE: 20110506
